FAERS Safety Report 5868888-5 (Version None)
Quarter: 2008Q3

REPORT INFORMATION
  Report Type: 
  Country: None (occurrence: None)
  Receive Date: 20080902
  Receipt Date: 20080902
  Transmission Date: 20090109
  Serious: Yes (Other)
  Sender: FDA-Public Use
  Company Number: None

PATIENT
  Age: 43 Year
  Sex: Female
  Weight: 68.0396 kg

DRUGS (1)
  1. BUPROPION HCL [Suspect]
     Indication: DEPRESSION
     Dates: start: 20080828, end: 20080901

REACTIONS (5)
  - CONFUSIONAL STATE [None]
  - DRY MOUTH [None]
  - DYSPHONIA [None]
  - INSOMNIA [None]
  - MYALGIA [None]
